FAERS Safety Report 16136234 (Version 1)
Quarter: 2019Q1

REPORT INFORMATION
  Report Type: Spontaneous
  Country: MX (occurrence: MX)
  Receive Date: 20190329
  Receipt Date: 20190329
  Transmission Date: 20190418
  Serious: Yes (Other)
  Sender: FDA-Public Use
  Company Number: MX-ASTRAZENECA-2019SE47843

PATIENT
  Age: 3106 Day
  Sex: Male
  Weight: 45 kg

DRUGS (12)
  1. VANNAIR [Interacting]
     Active Substance: BUDESONIDE\FORMOTEROL FUMARATE DIHYDRATE
     Indication: ASTHMA
     Dosage: 80 / 4.5 MCG 2 PUFFS FOUR TIMES A DAY
     Route: 055
     Dates: start: 20181204, end: 20190305
  2. ATOMOXETINE. [Concomitant]
     Active Substance: ATOMOXETINE HYDROCHLORIDE
     Dosage: 40 MG 2 TABLETS W / 24 HRS
     Route: 048
     Dates: start: 20180321
  3. MONTELUKAST [Concomitant]
     Active Substance: MONTELUKAST SODIUM
     Route: 048
     Dates: start: 20190119
  4. VANNAIR [Interacting]
     Active Substance: BUDESONIDE\FORMOTEROL FUMARATE DIHYDRATE
     Indication: ASTHMA
     Route: 055
     Dates: start: 20190306
  5. RISPERIDONE. [Concomitant]
     Active Substance: RISPERIDONE
     Dosage: 2 MG 3/4 TAB C / 24 HRS
     Route: 048
     Dates: start: 20180321
  6. METICORTEN [Concomitant]
     Active Substance: PREDNISONE
     Dosage: 20.0MG UNKNOWN
  7. CLARITYNE [Concomitant]
     Active Substance: LORATADINE
     Dosage: 10.0MG UNKNOWN
  8. VANNAIR [Suspect]
     Active Substance: BUDESONIDE\FORMOTEROL FUMARATE DIHYDRATE
     Indication: ASTHMA
     Dosage: 80 / 4.5 MCG 2 PUFFS FOUR TIMES A DAY
     Route: 055
     Dates: start: 20180501, end: 20180801
  9. ATOMOXETINE. [Concomitant]
     Active Substance: ATOMOXETINE HYDROCHLORIDE
     Route: 048
     Dates: start: 20180321
  10. AVAMYS [Concomitant]
     Active Substance: FLUTICASONE FUROATE
     Dosage: 27.5UG UNKNOWN
  11. RISPERIDONE. [Concomitant]
     Active Substance: RISPERIDONE
     Route: 048
     Dates: start: 20180321
  12. OSELTAMIVIR [Concomitant]
     Active Substance: OSELTAMIVIR
     Dosage: 75.0MG UNKNOWN

REACTIONS (15)
  - Blood thromboplastin increased [Not Recovered/Not Resolved]
  - Attention deficit/hyperactivity disorder [Unknown]
  - Rhinitis allergic [Unknown]
  - Bronchial hyperreactivity [Unknown]
  - Weight increased [Not Recovered/Not Resolved]
  - Drug interaction [Unknown]
  - Anxiety [Not Recovered/Not Resolved]
  - Influenza [Recovered/Resolved]
  - Mean cell volume decreased [Unknown]
  - Pharyngotonsillitis [Unknown]
  - Mental disorder [Unknown]
  - Pharyngitis [Unknown]
  - Coagulation time abnormal [Not Recovered/Not Resolved]
  - Sinusitis [Unknown]
  - Eye haemorrhage [Not Recovered/Not Resolved]

NARRATIVE: CASE EVENT DATE: 20181001
